FAERS Safety Report 23082377 (Version 1)
Quarter: 2023Q4

REPORT INFORMATION
  Report Type: Spontaneous
  Country: US (occurrence: US)
  Receive Date: 20231019
  Receipt Date: 20231019
  Transmission Date: 20240109
  Serious: No
  Sender: FDA-Public Use
  Company Number: US-TEVA-2023-US-2932543

PATIENT
  Age: 64 Year
  Sex: Male

DRUGS (1)
  1. BETAMETHASONE CLOTRIMAZOLE [Suspect]
     Active Substance: BETAMETHASONE DIPROPIONATE\CLOTRIMAZOLE
     Indication: Tinea pedis
     Dosage: 1-0.05 PERCENT, APPLIED TO HIS FEET, TWICE DAILY
     Route: 065
     Dates: start: 202304

REACTIONS (10)
  - Sciatica [Unknown]
  - Paraesthesia [Unknown]
  - Hypoaesthesia [Unknown]
  - Glycosylated haemoglobin increased [Unknown]
  - Blood cholesterol increased [Unknown]
  - Back pain [Unknown]
  - Vision blurred [Unknown]
  - Peripheral swelling [Unknown]
  - Product use issue [Unknown]
  - Product use in unapproved indication [Unknown]

NARRATIVE: CASE EVENT DATE: 20230101
